FAERS Safety Report 12915518 (Version 2)
Quarter: 2016Q4

REPORT INFORMATION
  Report Type: Spontaneous
  Country: US (occurrence: US)
  Receive Date: 20161106
  Receipt Date: 20161222
  Transmission Date: 20170207
  Serious: Yes (Other)
  Sender: FDA-Public Use
  Company Number: US-RELYPSA-RLY2016002930

PATIENT
  Sex: Female

DRUGS (19)
  1. SIMVASTATIN. [Concomitant]
     Active Substance: SIMVASTATIN
  2. CALCITRIOL. [Concomitant]
     Active Substance: CALCITRIOL
  3. PLAQUENIL [Concomitant]
     Active Substance: HYDROXYCHLOROQUINE SULFATE
  4. ASPIRIN. [Concomitant]
     Active Substance: ASPIRIN
  5. SODIUM BICARBONATE. [Concomitant]
     Active Substance: SODIUM BICARBONATE
  6. FOLIC ACID. [Concomitant]
     Active Substance: FOLIC ACID
  7. VELTASSA [Suspect]
     Active Substance: PATIROMER
     Indication: HYPERKALAEMIA
     Dosage: 8.4 G, QD
     Route: 048
     Dates: start: 20160224
  8. COLACE [Concomitant]
     Active Substance: DOCUSATE SODIUM
  9. CELEXA [Concomitant]
     Active Substance: CITALOPRAM HYDROBROMIDE
  10. FIBERCON [Concomitant]
     Active Substance: CALCIUM POLYCARBOPHIL
  11. MELATONIN [Concomitant]
     Active Substance: MELATONIN
  12. XANAX [Concomitant]
     Active Substance: ALPRAZOLAM
  13. CARVEDILOL. [Concomitant]
     Active Substance: CARVEDILOL
  14. URSODIOL. [Concomitant]
     Active Substance: URSODIOL
  15. DICYCLOMINE HCL [Concomitant]
     Active Substance: DICYCLOMINE HYDROCHLORIDE
  16. ARANESP [Concomitant]
     Active Substance: DARBEPOETIN ALFA
  17. PROLIA [Concomitant]
     Active Substance: DENOSUMAB
  18. OMEPRAZOLE. [Concomitant]
     Active Substance: OMEPRAZOLE
  19. CITRACAL + D [Concomitant]
     Active Substance: CALCIUM CITRATE\VITAMIN D

REACTIONS (2)
  - Renal impairment [Unknown]
  - Urinary tract infection [Unknown]

NARRATIVE: CASE EVENT DATE: 2016
